FAERS Safety Report 11087974 (Version 1)
Quarter: 2015Q2

REPORT INFORMATION
  Report Type: Report from Study
  Country: BR (occurrence: BR)
  Receive Date: 20150504
  Receipt Date: 20150504
  Transmission Date: 20150821
  Serious: Yes (Hospitalization, Other)
  Sender: FDA-Public Use
  Company Number: PHHY2015BR050122

PATIENT
  Age: 81 Year
  Sex: Female
  Weight: 70 kg

DRUGS (2)
  1. EXELON [Suspect]
     Active Substance: RIVASTIGMINE TARTRATE
     Indication: DEMENTIA ALZHEIMER^S TYPE
     Dosage: 1 OT, QD
     Route: 065
     Dates: end: 201411
  2. EXELON [Suspect]
     Active Substance: RIVASTIGMINE TARTRATE
     Dosage: 2 DF, QD (2 CAPSULES A DAY)
     Route: 065
     Dates: start: 201411, end: 201503

REACTIONS (6)
  - Loss of consciousness [Recovering/Resolving]
  - Suicide attempt [Recovered/Resolved]
  - Weight decreased [Recovering/Resolving]
  - Aggression [Recovering/Resolving]
  - Drug ineffective [Recovering/Resolving]
  - Dementia Alzheimer^s type [Not Recovered/Not Resolved]

NARRATIVE: CASE EVENT DATE: 20150323
